FAERS Safety Report 10194684 (Version 3)
Quarter: 2014Q2

REPORT INFORMATION
  Report Type: Spontaneous
  Country: US (occurrence: US)
  Receive Date: 20140526
  Receipt Date: 20140618
  Transmission Date: 20141212
  Serious: Yes (Hospitalization, Other)
  Sender: FDA-Public Use
  Company Number: US-009507513-1405USA010902

PATIENT
  Sex: Female

DRUGS (1)
  1. IMPLANON [Suspect]
     Indication: CONTRACEPTION
     Dosage: ONE SINGLE ROD
     Route: 059
     Dates: start: 20120523

REACTIONS (3)
  - Surgery [Recovered/Resolved]
  - Ectopic pregnancy [Recovered/Resolved]
  - Unintended pregnancy [Recovered/Resolved]
